FAERS Safety Report 7942673-2 (Version None)
Quarter: 2011Q4

REPORT INFORMATION
  Report Type: 
  Country: None (occurrence: None)
  Receive Date: 20111128
  Receipt Date: 20111123
  Transmission Date: 20120403
  Serious: No
  Sender: FDA-Public Use
  Company Number: US-PFIZER INC-2011239932

PATIENT
  Sex: Female
  Weight: 82.54 kg

DRUGS (6)
  1. ZOCOR [Suspect]
     Dosage: UNK
  2. LIPITOR [Suspect]
     Indication: BLOOD CHOLESTEROL INCREASED
     Dosage: 15 MG, UNK
     Route: 048
  3. METFORMIN [Concomitant]
     Indication: DIABETES MELLITUS
     Dosage: 500 MG, DAILY
  4. METOPROLOL SUCCINATE [Concomitant]
     Indication: HYPERTENSION
     Dosage: 100 MG, UNK
  5. CRESTOR [Suspect]
     Dosage: UNK
  6. LOVASTATIN [Suspect]
     Dosage: 40 MG, UNK

REACTIONS (4)
  - BLOOD TRIGLYCERIDES ABNORMAL [None]
  - BLOOD CHOLESTEROL ABNORMAL [None]
  - DRUG INEFFECTIVE [None]
  - MYALGIA [None]
